FAERS Safety Report 22279074 (Version 1)
Quarter: 2023Q2

REPORT INFORMATION
  Report Type: Spontaneous
  Country: FR (occurrence: FR)
  Receive Date: 20230503
  Receipt Date: 20230503
  Transmission Date: 20230722
  Serious: Yes (Other)
  Sender: FDA-Public Use
  Company Number: None

PATIENT
  Age: 24 Year
  Sex: Male

DRUGS (2)
  1. PREGABALIN [Suspect]
     Active Substance: PREGABALIN
     Indication: Product used for unknown indication
     Dosage: 6 DOSAGE FORM (6 CAPSULES OF PREGABALIN 300 MG)
     Route: 048
     Dates: start: 20230124, end: 20230124
  2. DIAZEPAM [Suspect]
     Active Substance: DIAZEPAM
     Indication: Product used for unknown indication
     Dosage: UNSPECIFIED DOSE
     Route: 048
     Dates: start: 20230124, end: 20230124

REACTIONS (2)
  - Poisoning deliberate [Unknown]
  - Intentional product misuse [Unknown]
